FAERS Safety Report 14140115 (Version 1)
Quarter: 2017Q4

REPORT INFORMATION
  Report Type: Report from Study
  Country: NL (occurrence: NL)
  Receive Date: 20171030
  Receipt Date: 20171030
  Transmission Date: 20180321
  Serious: Yes (Death)
  Sender: FDA-Public Use
  Company Number: NL-ROCHE-1922290

PATIENT

DRUGS (7)
  1. HEPARIN [Concomitant]
     Active Substance: HEPARIN SODIUM
     Dosage: 50000 IU
     Route: 040
  2. ALTEPLASE. [Suspect]
     Active Substance: ALTEPLASE
     Dosage: 20MG/HOUR?SUBSEQUENT TWO HOURS
     Route: 042
  3. NIFEDIPINE. [Concomitant]
     Active Substance: NIFEDIPINE
     Dosage: 40-120 MG/DAY
     Route: 065
  4. NITROGLYCERIN. [Concomitant]
     Active Substance: NITROGLYCERIN
     Dosage: 50-300 UG/MIN
     Route: 042
  5. METOPROLOL. [Concomitant]
     Active Substance: METOPROLOL
     Dosage: 50-200 MG
     Route: 065
  6. HEPARIN [Concomitant]
     Active Substance: HEPARIN SODIUM
     Dosage: 1000 IU/HOUR
     Route: 042
  7. ALTEPLASE. [Suspect]
     Active Substance: ALTEPLASE
     Indication: ANGINA UNSTABLE
     Route: 040

REACTIONS (1)
  - Retroperitoneal haemorrhage [Fatal]
